FAERS Safety Report 7099264-8 (Version None)
Quarter: 2010Q4

REPORT INFORMATION
  Report Type: 
  Country: None (occurrence: None)
  Receive Date: 20101110
  Receipt Date: 20101021
  Transmission Date: 20110411
  Serious: Yes (Other)
  Sender: FDA-Public Use
  Company Number: ACO_02916_2010

PATIENT
  Sex: Female

DRUGS (3)
  1. TIZANIDINE HCL [Suspect]
     Indication: MUSCLE SPASMS
     Dosage: 4 MG
  2. ATIVAN [Suspect]
     Indication: ANXIETY
     Dosage: 5 MG
  3. CYMBALTA [Suspect]
     Indication: DEPRESSION

REACTIONS (2)
  - DRUG EXPOSURE DURING PREGNANCY [None]
  - PREGNANCY [None]
